FAERS Safety Report 19742576 (Version 1)
Quarter: 2021Q3

REPORT INFORMATION
  Report Type: Spontaneous
  Country: IN (occurrence: IN)
  Receive Date: 20210824
  Receipt Date: 20210824
  Transmission Date: 20211014
  Serious: Yes (Death, Hospitalization, Other)
  Sender: FDA-Public Use
  Company Number: IN-PFIZER INC-2017068586

PATIENT
  Age: 35 Year
  Sex: Female
  Weight: 64.8 kg

DRUGS (15)
  1. PALBACE [Suspect]
     Active Substance: PALBOCICLIB
     Dosage: 100 MG
     Dates: start: 20171211
  2. AMARYL [Concomitant]
     Active Substance: GLIMEPIRIDE
     Dosage: 2 MG, 2X/DAY
  3. PALBACE [Suspect]
     Active Substance: PALBOCICLIB
     Indication: BREAST CANCER METASTATIC
     Dosage: 125 MG, ONCE DAILY
     Route: 048
     Dates: start: 20170116
  4. PALBACE [Suspect]
     Active Substance: PALBOCICLIB
     Dosage: 125 MG, CYCLIC (FOR 21 DAYS, WITH FOOD)
     Dates: start: 20170420
  5. PALBACE [Suspect]
     Active Substance: PALBOCICLIB
     Dosage: 125 MG
     Dates: start: 201806
  6. SHELCAL [Concomitant]
     Active Substance: CALCIUM CARBONATE\CHOLECALCIFEROL
     Dosage: 500 MG, 2X/DAY
  7. ZITA MET [Concomitant]
     Dosage: 20/1000, ONCE A DAY
  8. BRUFEN [Concomitant]
     Active Substance: IBUPROFEN
     Dosage: 400 MG, 3X/DAY (AFTER FOODX 7 DAYS)
  9. ALPRAZOLAM. [Concomitant]
     Active Substance: ALPRAZOLAM
     Dosage: 0.5 MG, 1X/DAY (AT BED  TIME)
  10. PALBACE [Suspect]
     Active Substance: PALBOCICLIB
     Dosage: 100 MG, ONCE A DAY
     Route: 048
     Dates: start: 20170116
  11. PALBACE [Suspect]
     Active Substance: PALBOCICLIB
     Dosage: 125 MG
     Route: 048
     Dates: start: 20170117, end: 20200311
  12. LETROZOLE. [Concomitant]
     Active Substance: LETROZOLE
     Dosage: 2.5 MG, 1X/DAY (X 2 WEEK)
     Route: 048
     Dates: start: 20170127
  13. PALBACE [Suspect]
     Active Substance: PALBOCICLIB
     Dosage: 100 MG, ONCE DAILY (WITH FOOD)
     Dates: start: 20180310
  14. ZOLEDRONIC ACID [Concomitant]
     Active Substance: ZOLEDRONIC ACID
     Dosage: 4 MG IN 100 ML NS OVER 20 MIN EVERY MONTH
     Dates: start: 20180110
  15. AMARYL [Concomitant]
     Active Substance: GLIMEPIRIDE
     Dosage: 2 MG, 1X/DAY

REACTIONS (19)
  - Fatigue [Recovered/Resolved]
  - Neoplasm progression [Unknown]
  - Limb discomfort [Unknown]
  - Arthralgia [Unknown]
  - Blood count abnormal [Unknown]
  - Fungal infection [Unknown]
  - Back pain [Recovered/Resolved]
  - Muscle spasms [Unknown]
  - Aspartate aminotransferase increased [Recovering/Resolving]
  - Blood glucose increased [Unknown]
  - Blood pressure decreased [Unknown]
  - Blood alkaline phosphatase increased [Unknown]
  - Death [Fatal]
  - Alanine aminotransferase increased [Recovering/Resolving]
  - Somnolence [Recovered/Resolved]
  - Hyperchlorhydria [Unknown]
  - Dizziness [Unknown]
  - Febrile neutropenia [Unknown]
  - Diarrhoea [Unknown]

NARRATIVE: CASE EVENT DATE: 2017
